FAERS Safety Report 14628902 (Version 1)
Quarter: 2018Q1

REPORT INFORMATION
  Report Type: Spontaneous
  Country: US (occurrence: US)
  Receive Date: 20180312
  Receipt Date: 20180312
  Transmission Date: 20180509
  Serious: No
  Sender: FDA-Public Use
  Company Number: None

PATIENT
  Age: 65 Year

DRUGS (18)
  1. TRAZODONE [Concomitant]
     Active Substance: TRAZODONE HYDROCHLORIDE
  2. OLM/HCTZ [Concomitant]
  3. FLOTICASONE [Concomitant]
  4. DOK [Concomitant]
     Active Substance: DOCUSATE SODIUM
  5. AINC SULF [Concomitant]
  6. MIRTAZAPINE. [Concomitant]
     Active Substance: MIRTAZAPINE
  7. PANTOPRAZOLE [Concomitant]
     Active Substance: PANTOPRAZOLE
  8. TIZANIDINE. [Concomitant]
     Active Substance: TIZANIDINE
  9. DEXAMETHASONE. [Concomitant]
     Active Substance: DEXAMETHASONE
  10. SENNA [Concomitant]
     Active Substance: SENNA LEAF\SENNOSIDES\SENNOSIDES A AND B
  11. TAMSULOSIN [Concomitant]
     Active Substance: TAMSULOSIN
  12. METHCARBAM [Concomitant]
  13. ATORVASTATIN [Concomitant]
     Active Substance: ATORVASTATIN
  14. CABOMETYX [Suspect]
     Active Substance: CABOZANTINIB S-MALATE
     Indication: NEOPLASM MALIGNANT
     Dosage: ROUTE - P
     Dates: start: 20180216
  15. GABAPENTIN. [Concomitant]
     Active Substance: GABAPENTIN
  16. LACTOSE [Concomitant]
     Active Substance: LACTOSE
  17. VITAMIN D3 [Concomitant]
     Active Substance: CHOLECALCIFEROL
  18. FAMODITINE [Concomitant]

REACTIONS (1)
  - Dry skin [None]

NARRATIVE: CASE EVENT DATE: 201803
